FAERS Safety Report 13577723 (Version 2)
Quarter: 2017Q2

REPORT INFORMATION
  Report Type: Spontaneous
  Country: US (occurrence: US)
  Receive Date: 20170524
  Receipt Date: 20170615
  Transmission Date: 20170830
  Serious: No
  Sender: FDA-Public Use
  Company Number: US-BRISTOL-MYERS SQUIBB COMPANY-BMS-2017-045329

PATIENT
  Age: 55 Year
  Sex: Female

DRUGS (1)
  1. SPRYCEL [Suspect]
     Active Substance: DASATINIB
     Indication: ESSENTIAL THROMBOCYTHAEMIA
     Dosage: 100 MG, QD
     Route: 048
     Dates: start: 2015

REACTIONS (4)
  - Product use in unapproved indication [Unknown]
  - Asthma [Unknown]
  - Headache [Unknown]
  - Nausea [Unknown]

NARRATIVE: CASE EVENT DATE: 201705
